FAERS Safety Report 6518701-8 (Version None)
Quarter: 2009Q4

REPORT INFORMATION
  Report Type: 
  Country: None (occurrence: None)
  Receive Date: 20091228
  Receipt Date: 20091224
  Transmission Date: 20100525
  Serious: Yes (Hospitalization)
  Sender: FDA-Public Use
  Company Number: GB-ROCHE-676475

PATIENT
  Sex: Male
  Weight: 72 kg

DRUGS (5)
  1. CAPECITABINE [Suspect]
     Indication: COLON CANCER
     Route: 048
  2. AMLODIPINE [Concomitant]
     Indication: HYPERTENSION
     Route: 048
  3. BENDROFLUMETHIAZIDE [Concomitant]
     Indication: HYPERTENSION
     Route: 048
  4. PAROXETINE [Concomitant]
     Indication: ANTIDEPRESSANT THERAPY
     Route: 048
  5. ZOPICLONE [Concomitant]
     Indication: SEDATION
     Route: 048

REACTIONS (1)
  - VOLVULUS [None]
